FAERS Safety Report 6695395-2 (Version None)
Quarter: 2010Q2

REPORT INFORMATION
  Report Type: 
  Country: None (occurrence: None)
  Receive Date: 20100424
  Receipt Date: 20100413
  Transmission Date: 20101027
  Serious: Yes (Hospitalization, Other)
  Sender: FDA-Public Use
  Company Number: FR-ELI_LILLY_AND_COMPANY-FR201004003977

PATIENT
  Age: 65 Year
  Sex: Male

DRUGS (1)
  1. ZYPREXA [Suspect]
     Indication: BRIEF PSYCHOTIC DISORDER WITH MARKED STRESSORS
     Dosage: 5 MG, DAILY (1/D)
     Route: 048
     Dates: start: 20050101, end: 20100301

REACTIONS (2)
  - HEMIPARESIS [None]
  - ISCHAEMIC STROKE [None]
